FAERS Safety Report 7582776-8 (Version None)
Quarter: 2011Q2

REPORT INFORMATION
  Report Type: 
  Country: None (occurrence: None)
  Receive Date: 20110527
  Receipt Date: 20101112
  Transmission Date: 20111010
  Serious: Yes (Other)
  Sender: FDA-Public Use
  Company Number: US201010001574

PATIENT
  Age: 55 Year
  Sex: Female

DRUGS (7)
  1. GLYSET (MIGLITOL) [Concomitant]
  2. JANUVIA [Concomitant]
  3. BYETTA [Suspect]
     Indication: TYPE 2 DIABETES MELLITUS
     Dosage: 5 UG,SUBCUTANEOUS, 10 UG, 2/D, SUBCUTANEOUS
     Route: 058
     Dates: start: 20100704, end: 20100915
  4. BYETTA [Suspect]
     Indication: TYPE 2 DIABETES MELLITUS
     Dosage: 5 UG,SUBCUTANEOUS, 10 UG, 2/D, SUBCUTANEOUS
     Route: 058
     Dates: start: 20100609, end: 20100704
  5. METFORMIN (METFORMIN) [Concomitant]
  6. GLIMEPIRIDE [Concomitant]
  7. ACTOS [Concomitant]

REACTIONS (4)
  - RENAL IMPAIRMENT [None]
  - URTICARIA [None]
  - INFECTION [None]
  - ABDOMINAL PAIN [None]
